FAERS Safety Report 17692763 (Version 1)
Quarter: 2020Q2

REPORT INFORMATION
  Report Type: Report from Study
  Country: US (occurrence: US)
  Receive Date: 20200422
  Receipt Date: 20200422
  Transmission Date: 20200714
  Serious: No
  Sender: FDA-Public Use
  Company Number: NVSC2020US105821

PATIENT
  Sex: Female

DRUGS (1)
  1. GLATOPA [Suspect]
     Active Substance: GLATIRAMER ACETATE
     Indication: MULTIPLE SCLEROSIS
     Dosage: 40 MG 3X PER WEEK
     Route: 058
     Dates: start: 20200417

REACTIONS (5)
  - Chest pain [Unknown]
  - Dyspnoea [Unknown]
  - Chills [Unknown]
  - Flushing [Unknown]
  - Pain [Unknown]
